FAERS Safety Report 9267078 (Version 1)
Quarter: 2013Q2

REPORT INFORMATION
  Report Type: Spontaneous
  Country: US (occurrence: US)
  Receive Date: 20130502
  Receipt Date: 20130502
  Transmission Date: 20140414
  Serious: No
  Sender: FDA-Public Use
  Company Number: US-PFIZER INC-2013136543

PATIENT
  Age: 17 Year
  Sex: Male

DRUGS (2)
  1. RELPAX [Suspect]
     Indication: MIGRAINE
     Dosage: 40 MG, UNK(NOT MORE THAN TWO TABLETS IN 24 HOURS)
     Dates: start: 201208
  2. TYLENOL [Concomitant]
     Indication: MIGRAINE
     Dosage: 1000 MG (TAKING TWO 500 MG TABLETS TOGETHER), AS NEEDED

REACTIONS (1)
  - Drug ineffective [Unknown]
